FAERS Safety Report 6664177-X (Version None)
Quarter: 2010Q2

REPORT INFORMATION
  Report Type: 
  Country: None (occurrence: None)
  Receive Date: 20100401
  Receipt Date: 20100324
  Transmission Date: 20101027
  Serious: Yes (Other)
  Sender: FDA-Public Use
  Company Number: CN-PFIZER INC-2010037404

PATIENT
  Sex: Male

DRUGS (2)
  1. LIPITOR [Suspect]
     Dosage: UNK
     Route: 048
     Dates: start: 20100313, end: 20100301
  2. LIPITOR [Suspect]
     Dosage: UNK
     Route: 048
     Dates: start: 20100313

REACTIONS (1)
  - OEDEMA PERIPHERAL [None]
